FAERS Safety Report 18089398 (Version 3)
Quarter: 2020Q3

REPORT INFORMATION
  Report Type: Spontaneous
  Country: GB (occurrence: GB)
  Receive Date: 20200729
  Receipt Date: 20200828
  Transmission Date: 20201103
  Serious: Yes (Other)
  Sender: FDA-Public Use
  Company Number: GB-ASCEND THERAPEUTICS US, LLC-2087904

PATIENT
  Age: 54 Year
  Sex: Female
  Weight: 64.41 kg

DRUGS (10)
  1. ESTROGEL [Suspect]
     Active Substance: ESTRADIOL
     Indication: MENOPAUSAL SYMPTOMS
     Route: 003
     Dates: start: 20170101
  2. CALCIUM (CALCIUM), UNKNOWN [Concomitant]
     Route: 065
  3. ESTROGEL [Suspect]
     Active Substance: ESTRADIOL
  4. OESTRODOSE (ESTRADIOL) [Suspect]
     Active Substance: ESTRADIOL
     Route: 065
  5. OMEGA?3?ACID ETHYL ESTERS. [Concomitant]
     Active Substance: OMEGA-3-ACID ETHYL ESTERS
     Route: 065
  6. CETIRIZINE [Concomitant]
     Active Substance: CETIRIZINE HYDROCHLORIDE
     Route: 065
  7. TUMERIC (CURCUMA LONGA), UNKNOWN [Concomitant]
     Route: 065
  8. VITAMIN D (ERGOCALCIFEROL), UNKNOWN [Concomitant]
     Route: 065
  9. DUORESP SPIROMAX (FORMOTEROL FUMARATE, BUDESONIDE), UNKNOWN?INDICATION [Concomitant]
     Route: 065
  10. OESTRODOSE (ESTRADIOL) [Suspect]
     Active Substance: ESTRADIOL
     Route: 065

REACTIONS (17)
  - Apathy [Recovered/Resolved with Sequelae]
  - Night sweats [Recovering/Resolving]
  - Mood altered [Recovering/Resolving]
  - Tearfulness [Recovering/Resolving]
  - Myalgia [Recovering/Resolving]
  - Menopausal symptoms [Recovering/Resolving]
  - Alopecia [Recovering/Resolving]
  - Lethargy [Recovering/Resolving]
  - Apathy [Recovering/Resolving]
  - Arthralgia [Recovering/Resolving]
  - Middle insomnia [Recovering/Resolving]
  - Vision blurred [Recovering/Resolving]
  - Sleep disorder [Not Recovered/Not Resolved]
  - Feeling abnormal [Recovering/Resolving]
  - Product substitution issue [Recovering/Resolving]
  - Product label on wrong product [Unknown]
  - Drug ineffective [Not Recovered/Not Resolved]

NARRATIVE: CASE EVENT DATE: 20200501
